FAERS Safety Report 8775790 (Version 1)
Quarter: 2012Q4

REPORT INFORMATION
  Report Type: 
  Country: US (occurrence: US)
  Receive Date: 20120910
  Receipt Date: 20120910
  Transmission Date: 20130627
  Serious: Yes (Other)
  Sender: FDA-Public Use
  Company Number: US-ROCHE-1111179

PATIENT
  Sex: Female

DRUGS (1)
  1. XOLAIR [Suspect]
     Indication: PRODUCT USED FOR UNKNOWN INDICATION
     Dosage: last dose prior to SAE was taken on 2/Aug/2012
     Route: 065
     Dates: start: 20110425

REACTIONS (2)
  - Asthma [Unknown]
  - Asthma [Unknown]
